FAERS Safety Report 7499231-6 (Version None)
Quarter: 2011Q2

REPORT INFORMATION
  Report Type: 
  Country: None (occurrence: None)
  Receive Date: 20110524
  Receipt Date: 20110517
  Transmission Date: 20111010
  Serious: Yes (Death)
  Sender: FDA-Public Use
  Company Number: JP-JNJFOC-20110207439

PATIENT
  Sex: Male

DRUGS (4)
  1. RISPERDAL CONSTA [Suspect]
     Indication: PRODUCT USED FOR UNKNOWN INDICATION
     Route: 030
  2. SILECE [Concomitant]
     Route: 048
     Dates: end: 20110221
  3. CEPHARANTHINE [Concomitant]
     Route: 048
     Dates: end: 20110221
  4. RISPERDAL CONSTA [Suspect]
     Route: 030
     Dates: start: 20090101, end: 20110221

REACTIONS (1)
  - CEREBRAL INFARCTION [None]
